FAERS Safety Report 6250215-5 (Version None)
Quarter: 2009Q2

REPORT INFORMATION
  Report Type: 
  Country: None (occurrence: None)
  Receive Date: 20090630
  Receipt Date: 20080201
  Transmission Date: 20091009
  Serious: Yes (Other)
  Sender: FDA-Public Use
  Company Number: US-ASTRAZENECA-2006UW25164

PATIENT
  Age: 28952 Day
  Sex: Female

DRUGS (21)
  1. SEROQUEL [Suspect]
     Indication: DEPRESSION
     Dosage: 25 MG EVERY 2 HRS PRN
     Route: 048
     Dates: start: 20050125
  2. SEROQUEL [Suspect]
     Indication: BIPOLAR DISORDER
     Dosage: 25 MG EVERY 2 HRS PRN
     Route: 048
     Dates: start: 20050125
  3. SEROQUEL [Suspect]
     Indication: AGITATION
     Dosage: 25 MG EVERY 2 HRS PRN
     Route: 048
     Dates: start: 20050125
  4. SEROQUEL [Suspect]
     Dosage: 50MG TO 100MG
     Route: 048
     Dates: start: 20050220, end: 20070831
  5. SEROQUEL [Suspect]
     Dosage: 50MG TO 100MG
     Route: 048
     Dates: start: 20050220, end: 20070831
  6. SEROQUEL [Suspect]
     Dosage: 50MG TO 100MG
     Route: 048
     Dates: start: 20050220, end: 20070831
  7. ARICEPT [Concomitant]
     Dates: start: 20071105
  8. LORAZEPAM [Concomitant]
     Dates: start: 20071105
  9. PERCOCET [Concomitant]
     Indication: PAIN
     Dates: start: 20010527
  10. ACTOS [Concomitant]
     Route: 048
     Dates: start: 20071106
  11. AMLODIPINE [Concomitant]
     Route: 048
     Dates: start: 20071106
  12. ASPIRIN [Concomitant]
     Indication: ANALGESIA
     Route: 048
     Dates: start: 20071106
  13. COZAAR [Concomitant]
     Route: 048
     Dates: start: 20071106
  14. GLIMEPIRIDE [Concomitant]
     Indication: DIABETES MELLITUS
     Route: 048
     Dates: start: 20071106
  15. GLYSET [Concomitant]
     Route: 048
     Dates: start: 20071106
  16. LANTUS [Concomitant]
     Dosage: 100 UNIT/ML DAILY
     Route: 058
     Dates: start: 20071106
  17. LIPITOR [Concomitant]
     Route: 048
     Dates: start: 20071106
  18. LISINOPRIL [Concomitant]
     Dosage: 10-12.5 MG ,DAILY
     Route: 048
     Dates: start: 20071106
  19. LYRICA [Concomitant]
     Route: 048
     Dates: start: 20071106
  20. DIOVAN [Concomitant]
     Dates: start: 20071106
  21. HYDROCHLOROTHIAZIDE [Concomitant]
     Dates: start: 20071106

REACTIONS (3)
  - DIABETES MELLITUS [None]
  - DIABETIC EYE DISEASE [None]
  - DIABETIC RETINOPATHY [None]
